FAERS Safety Report 5171079-7 (Version None)
Quarter: 2006Q4

REPORT INFORMATION
  Report Type: 
  Country: None (occurrence: None)
  Receive Date: 20061213
  Receipt Date: 20061211
  Transmission Date: 20070319
  Serious: Yes (Other)
  Sender: FDA-Public Use
  Company Number: US-GLAXOSMITHKLINE-A0631237A

PATIENT
  Age: 40 Year
  Sex: Female

DRUGS (5)
  1. LAMICTAL [Suspect]
     Indication: EPILEPSY
     Route: 048
     Dates: start: 20060225
  2. TEGRETOL [Concomitant]
     Indication: EPILEPSY
     Dosage: 1000MG PER DAY
     Dates: end: 20060220
  3. DEPAKOTE [Concomitant]
     Indication: EPILEPSY
     Dosage: 2000MG PER DAY
     Dates: end: 20060215
  4. PRENATAL VITAMINS [Concomitant]
     Dates: start: 20060216, end: 20060330
  5. FOLIC ACID [Concomitant]
     Dates: start: 20060216, end: 20060330

REACTIONS (2)
  - ABORTION SPONTANEOUS [None]
  - DRUG EXPOSURE DURING PREGNANCY [None]
